FAERS Safety Report 20495172 (Version 3)
Quarter: 2024Q2

REPORT INFORMATION
  Report Type: Spontaneous
  Country: US (occurrence: US)
  Receive Date: 20220221
  Receipt Date: 20240416
  Transmission Date: 20240716
  Serious: No
  Sender: FDA-Public Use
  Company Number: US-GALDERMA-US2022000439

PATIENT

DRUGS (12)
  1. PROACTIV MD ADAPALENE ACNE TREATMENT [Suspect]
     Active Substance: ADAPALENE
     Indication: Acne
     Dosage: 1 DOSAGE FORM, TID
     Route: 061
     Dates: start: 202110, end: 202202
  2. PROACTIV MD ADAPALENE ACNE TREATMENT [Suspect]
     Active Substance: ADAPALENE
     Dosage: 1 DOSAGE FORM
     Route: 061
     Dates: start: 2024, end: 2024
  3. PROACTIV MD DAILY OIL CONTROL SPF 30 [Suspect]
     Active Substance: AVOBENZONE\OCTISALATE\OCTOCRYLENE
     Indication: Acne
     Dosage: 1 DOSAGE FORM, BIW
     Route: 061
     Dates: start: 202110, end: 202202
  4. PROACTIV MD DAILY OIL CONTROL SPF 30 [Suspect]
     Active Substance: AVOBENZONE\OCTISALATE\OCTOCRYLENE
     Dosage: 1 DOSAGE FORM
     Route: 061
     Dates: start: 2024, end: 2024
  5. COSMETICS [Concomitant]
     Active Substance: COSMETICS
     Indication: Acne
     Dosage: 1 DOSAGE FORM, BIW
     Route: 061
     Dates: start: 202110, end: 202202
  6. COSMETICS [Concomitant]
     Active Substance: COSMETICS
     Dosage: 1 DOSAGE FORM
     Route: 061
     Dates: start: 2024, end: 2024
  7. COSMETICS [Concomitant]
     Active Substance: COSMETICS
     Indication: Acne
     Dosage: 1 DOSAGE FORM, BID
     Route: 061
     Dates: start: 202110, end: 202202
  8. COSMETICS [Concomitant]
     Active Substance: COSMETICS
     Dosage: 1 DOSAGE FORM
     Route: 061
     Dates: start: 2024, end: 2024
  9. PROACTIVPLUS SKIN SMOOTHING EXFOLIATOR [Concomitant]
     Active Substance: BENZOYL PEROXIDE
     Indication: Acne
     Dosage: 1 DOSAGE FORM, BIW
     Route: 061
     Dates: start: 202110, end: 20220112
  10. PROACTIVPLUS SKIN SMOOTHING EXFOLIATOR [Concomitant]
     Active Substance: BENZOYL PEROXIDE
     Dosage: 1 DOSAGE FORM
     Route: 061
     Dates: start: 2024, end: 2024
  11. Proactiv Redness Relief Serum [Concomitant]
     Indication: Acne
     Dosage: 1 DOSAGE FORM, BIW
     Route: 061
     Dates: start: 202110, end: 202202
  12. Proactiv Redness Relief Serum [Concomitant]
     Dosage: 1 DOSAGE FORM
     Route: 061
     Dates: start: 2024, end: 2024

REACTIONS (6)
  - Skin hyperpigmentation [Not Recovered/Not Resolved]
  - Acne [Not Recovered/Not Resolved]
  - Rash papular [Not Recovered/Not Resolved]
  - Skin haemorrhage [Recovering/Resolving]
  - Inappropriate schedule of product administration [Recovered/Resolved]
  - Overdose [Recovered/Resolved]

NARRATIVE: CASE EVENT DATE: 20211001
